FAERS Safety Report 18169009 (Version 2)
Quarter: 2020Q4

REPORT INFORMATION
  Report Type: Report from Study
  Country: GB (occurrence: GB)
  Receive Date: 20200818
  Receipt Date: 20201003
  Transmission Date: 20210113
  Serious: Yes (Other)
  Sender: FDA-Public Use
  Company Number: NVSC2020GB225502

PATIENT
  Age: 59 Year
  Sex: Male

DRUGS (1)
  1. HYRIMOZ [Suspect]
     Active Substance: ADALIMUMAB-ADAZ
     Indication: PSORIASIS
     Dosage: 40 MG (EOW)
     Route: 065
     Dates: start: 20190504

REACTIONS (4)
  - Pyrexia [Unknown]
  - COVID-19 [Unknown]
  - Influenza like illness [Unknown]
  - Cough [Unknown]

NARRATIVE: CASE EVENT DATE: 20200625
